FAERS Safety Report 6262243-4 (Version None)
Quarter: 2009Q3

REPORT INFORMATION
  Report Type: 
  Country: None (occurrence: None)
  Receive Date: 20090709
  Receipt Date: 20090702
  Transmission Date: 20100115
  Serious: No
  Sender: FDA-Public Use
  Company Number: US-AMGEN-QUU351852

PATIENT
  Sex: Female
  Weight: 72.2 kg

DRUGS (5)
  1. ENBREL [Suspect]
     Indication: RHEUMATOID ARTHRITIS
     Route: 058
     Dates: start: 20060224
  2. METHOTREXATE [Concomitant]
     Route: 048
  3. FOLIC ACID [Concomitant]
  4. CLARITIN-D [Concomitant]
  5. SIMETHICONE [Concomitant]

REACTIONS (7)
  - CONTUSION [None]
  - ERYTHEMA [None]
  - HYPOTHYROIDISM [None]
  - INJECTION SITE HAEMATOMA [None]
  - INJECTION SITE PAIN [None]
  - RASH [None]
  - RHEUMATOID ARTHRITIS [None]
